FAERS Safety Report 9717681 (Version 1)
Quarter: 2013Q4

REPORT INFORMATION
  Report Type: Spontaneous
  Country: ES (occurrence: ES)
  Receive Date: 20131127
  Receipt Date: 20131127
  Transmission Date: 20140711
  Serious: Yes (Other)
  Sender: FDA-Public Use
  Company Number: ES-WATSON-2013-21800

PATIENT
  Age: 80 Year
  Sex: Female

DRUGS (2)
  1. MIRTAZAPINA ACTAVIS [Suspect]
     Indication: PRODUCT USED FOR UNKNOWN INDICATION
     Dosage: UNK
     Route: 048
     Dates: start: 201310
  2. DULOXETINE [Concomitant]
     Indication: PRODUCT USED FOR UNKNOWN INDICATION
     Dosage: UNK
     Route: 065

REACTIONS (3)
  - Hallucination [Unknown]
  - Delirium [Unknown]
  - Medication error [Unknown]
